FAERS Safety Report 6844729-4 (Version None)
Quarter: 2010Q2

REPORT INFORMATION
  Report Type: 
  Country: None (occurrence: None)
  Receive Date: 20100629
  Receipt Date: 20100331
  Transmission Date: 20101027
  Serious: No
  Sender: FDA-Public Use
  Company Number: US-WYE-H14478810

PATIENT
  Age: 65 Year
  Sex: Male
  Weight: 72.64 kg

DRUGS (5)
  1. PRISTIQ [Suspect]
     Indication: APATHY
     Dosage: UNKNOW DOSE EVERY OTHER DAY, ORAL; UNKNOWN DOSE  DAILY, ORAL
     Route: 048
     Dates: start: 20100311, end: 20100301
  2. PRISTIQ [Suspect]
     Indication: FATIGUE
     Dosage: UNKNOW DOSE EVERY OTHER DAY, ORAL; UNKNOWN DOSE  DAILY, ORAL
     Route: 048
     Dates: start: 20100311, end: 20100301
  3. PRISTIQ [Suspect]
     Indication: APATHY
     Dosage: UNKNOW DOSE EVERY OTHER DAY, ORAL; UNKNOWN DOSE  DAILY, ORAL
     Route: 048
     Dates: start: 20100301
  4. PRISTIQ [Suspect]
     Indication: FATIGUE
     Dosage: UNKNOW DOSE EVERY OTHER DAY, ORAL; UNKNOWN DOSE  DAILY, ORAL
     Route: 048
     Dates: start: 20100301
  5. XANAX [Concomitant]

REACTIONS (2)
  - EYE DISORDER [None]
  - VISION BLURRED [None]
